FAERS Safety Report 9406506 (Version 2)
Quarter: 2013Q4

REPORT INFORMATION
  Report Type: Report from Study
  Country: US (occurrence: US)
  Receive Date: 20130718
  Receipt Date: 20131105
  Transmission Date: 20140711
  Serious: Yes (Death, Hospitalization, Other)
  Sender: FDA-Public Use
  Company Number: US-BRISTOL-MYERS SQUIBB COMPANY-14053144

PATIENT
  Age: 55 Year
  Sex: Male

DRUGS (1)
  1. IPILIMUMAB [Suspect]
     Indication: MALIGNANT MELANOMA
     Dosage: 840MG
     Route: 042
     Dates: start: 20071217, end: 20080107

REACTIONS (4)
  - Colitis [Recovered/Resolved]
  - Malignant neoplasm progression [Fatal]
  - Large intestine perforation [Recovered/Resolved]
  - Haematochezia [Unknown]
